FAERS Safety Report 15266814 (Version 2)
Quarter: 2018Q3

REPORT INFORMATION
  Report Type: Spontaneous
  Country: US (occurrence: US)
  Receive Date: 20180810
  Receipt Date: 20180816
  Transmission Date: 20181010
  Serious: No
  Sender: FDA-Public Use
  Company Number: US-ASTRAZENECA-2018SF00963

PATIENT
  Age: 72 Year
  Sex: Male
  Weight: 86.2 kg

DRUGS (11)
  1. TYLENOL [Concomitant]
     Active Substance: ACETAMINOPHEN
  2. SLOW ACTING INSULIN [Concomitant]
     Indication: DIABETES MELLITUS
     Route: 058
  3. BRILINTA [Suspect]
     Active Substance: TICAGRELOR
     Indication: STENT PLACEMENT
     Route: 048
     Dates: start: 20170901
  4. INSULIN [Concomitant]
     Active Substance: INSULIN NOS
     Indication: DIABETES MELLITUS
     Route: 058
  5. METFORMIN [Concomitant]
     Active Substance: METFORMIN HYDROCHLORIDE
     Indication: DIABETES MELLITUS
     Route: 048
  6. METOPROLOL TARTRATE. [Suspect]
     Active Substance: METOPROLOL TARTRATE
     Indication: BLOOD PRESSURE MEASUREMENT
     Route: 048
  7. ATORVASTATIN [Concomitant]
     Active Substance: ATORVASTATIN
     Indication: BLOOD PRESSURE MEASUREMENT
     Route: 048
  8. ASPIRIN. [Concomitant]
     Active Substance: ASPIRIN
     Indication: ADJUVANT THERAPY
     Route: 048
  9. ALKA?SELTZER PLUS NOS [Concomitant]
     Active Substance: ACETAMINOPHEN\ASPIRIN\CHLORPHENIRAMINE MALEATE\DEXTROMETHORPHAN HYDROBROMIDE\DIPHENHYDRAMINE HYDROCHLORIDE\DOXYLAMINE SUCCINATE\PHENYLEPHRINE BITARTRATE\PHENYLEPHRINE HYDROCHLORIDE
  10. BRILINTA [Suspect]
     Active Substance: TICAGRELOR
     Indication: CIRCULATORY COLLAPSE
     Route: 048
     Dates: start: 20170901
  11. FAMOTIDINE. [Concomitant]
     Active Substance: FAMOTIDINE
     Indication: BLOOD PRESSURE MEASUREMENT
     Route: 048

REACTIONS (17)
  - Pyrexia [Unknown]
  - Myalgia [Unknown]
  - Feeling abnormal [Recovering/Resolving]
  - Adverse event [Not Recovered/Not Resolved]
  - Insomnia [Unknown]
  - Pain [Unknown]
  - Gait disturbance [Recovering/Resolving]
  - Pharyngitis streptococcal [Unknown]
  - Erythema [Not Recovered/Not Resolved]
  - Chills [Unknown]
  - Tonsillar inflammation [Recovering/Resolving]
  - Muscular weakness [Unknown]
  - Contusion [Unknown]
  - Nasopharyngitis [Recovering/Resolving]
  - Dysphagia [Recovering/Resolving]
  - Rash macular [Not Recovered/Not Resolved]
  - Arthralgia [Unknown]

NARRATIVE: CASE EVENT DATE: 2018
